FAERS Safety Report 12506818 (Version 3)
Quarter: 2016Q3

REPORT INFORMATION
  Report Type: Spontaneous
  Country: NO (occurrence: NO)
  Receive Date: 20160629
  Receipt Date: 20160714
  Transmission Date: 20161109
  Serious: Yes (Other)
  Sender: FDA-Public Use
  Company Number: NO-ROCHE-1784347

PATIENT
  Sex: Male

DRUGS (1)
  1. XOLAIR [Suspect]
     Active Substance: OMALIZUMAB
     Indication: SOLAR URTICARIA
     Route: 065

REACTIONS (3)
  - Porphyria [Unknown]
  - Photokeratitis [Recovering/Resolving]
  - Product use issue [Unknown]
